FAERS Safety Report 15560838 (Version 1)
Quarter: 2018Q4

REPORT INFORMATION
  Report Type: Spontaneous
  Country: US (occurrence: US)
  Receive Date: 20181024
  Receipt Date: 20181024
  Transmission Date: 20190205
  Serious: No
  Sender: FDA-Public Use
  Company Number: None

PATIENT
  Age: 42 Year
  Sex: Male

DRUGS (4)
  1. SPRYCEL [Suspect]
     Active Substance: DASATINIB
     Route: 048
     Dates: start: 20150101
  2. ALTACE [Concomitant]
     Active Substance: RAMIPRIL
  3. LUPITOR [Concomitant]
  4. PLAVIX [Concomitant]
     Active Substance: CLOPIDOGREL BISULFATE

REACTIONS (3)
  - Peripheral swelling [None]
  - Diarrhoea [None]
  - Faeces soft [None]

NARRATIVE: CASE EVENT DATE: 20181022
